FAERS Safety Report 9357575 (Version 3)
Quarter: 2013Q3

REPORT INFORMATION
  Report Type: Spontaneous
  Country: US (occurrence: US)
  Receive Date: 20130620
  Receipt Date: 20130822
  Transmission Date: 20140515
  Serious: Yes (Hospitalization, Disabling)
  Sender: FDA-Public Use
  Company Number: US-JNJFOC-20130607787

PATIENT
  Age: 77 Year
  Sex: Male
  Weight: 74.12 kg

DRUGS (26)
  1. PROTONIX [Concomitant]
     Route: 065
  2. ASMANEX [Concomitant]
     Dosage: 2 PUFFS
     Route: 065
  3. ASPIRIN [Concomitant]
     Route: 065
  4. AVODART [Concomitant]
     Route: 065
  5. CALCIUM SUPPLEMENT + VITAMIN D [Concomitant]
     Route: 065
  6. CRESTOR [Concomitant]
     Route: 065
  7. IMDUR [Concomitant]
     Route: 065
  8. LASIX [Concomitant]
     Route: 065
  9. METFORMIN [Concomitant]
     Route: 065
  10. METOPROLOL TARTRATE [Concomitant]
     Route: 048
  11. VITAMIN D [Concomitant]
     Route: 065
  12. NITROGLYCERIN [Concomitant]
     Route: 065
  13. XANAX [Concomitant]
     Indication: ANXIETY
     Route: 048
  14. DIGOXIN [Concomitant]
     Route: 065
  15. K-DUR [Concomitant]
     Route: 048
  16. PROTONIX [Concomitant]
     Route: 048
  17. NITROQUICK [Concomitant]
     Indication: ANXIETY
     Route: 060
  18. XARELTO [Suspect]
     Indication: CEREBROVASCULAR ACCIDENT PROPHYLAXIS
     Route: 048
  19. XARELTO [Suspect]
     Indication: CEREBROVASCULAR ACCIDENT PROPHYLAXIS
     Route: 048
     Dates: start: 20130322, end: 20130612
  20. XARELTO [Suspect]
     Indication: CEREBROVASCULAR ACCIDENT PROPHYLAXIS
     Route: 048
     Dates: end: 20130605
  21. XARELTO [Suspect]
     Indication: ATRIAL FIBRILLATION
     Route: 048
     Dates: end: 20130605
  22. XARELTO [Suspect]
     Indication: ATRIAL FIBRILLATION
     Route: 048
     Dates: start: 20130322, end: 20130612
  23. XARELTO [Suspect]
     Indication: ATRIAL FIBRILLATION
     Route: 048
  24. AMIODARONE [Suspect]
     Indication: ATRIAL FIBRILLATION
     Route: 048
  25. AMIODARONE [Suspect]
     Indication: ATRIAL FIBRILLATION
     Route: 048
  26. PLAVIX [Suspect]
     Indication: ATRIAL FIBRILLATION
     Route: 048

REACTIONS (4)
  - Dyspnoea [Recovering/Resolving]
  - Haemoptysis [Recovered/Resolved]
  - Asthenia [Not Recovered/Not Resolved]
  - Fatigue [Not Recovered/Not Resolved]
